FAERS Safety Report 5252039-4 (Version None)
Quarter: 2007Q1

REPORT INFORMATION
  Report Type: 
  Country: None (occurrence: None)
  Receive Date: 20070226
  Receipt Date: 20070212
  Transmission Date: 20070707
  Serious: Yes (Hospitalization)
  Sender: FDA-Public Use
  Company Number: 236678

PATIENT
  Age: 76 Year
  Sex: Female

DRUGS (4)
  1. MABTHERA (RITUXIMAB) CONC FOR SOLUTION FOR INFUSION [Suspect]
     Indication: NON-HODGKIN'S LYMPHOMA
     Dosage: 700 MG Q3W INTRAVENOUS
     Route: 042
     Dates: start: 20070108
  2. CYCLOPHOSPHAMIDE [Concomitant]
  3. VINCRISTINE [Concomitant]
  4. PREDNISONE [Concomitant]

REACTIONS (1)
  - COLITIS ISCHAEMIC [None]
